FAERS Safety Report 18427879 (Version 2)
Quarter: 2020Q4

REPORT INFORMATION
  Report Type: Other
  Country: US (occurrence: US)
  Receive Date: 20201026
  Receipt Date: 20201029
  Transmission Date: 20210114
  Serious: Yes (Hospitalization)
  Sender: FDA-Public Use
  Company Number: US-ROCHE-2699582

PATIENT
  Sex: Female

DRUGS (1)
  1. OCREVUS [Suspect]
     Active Substance: OCRELIZUMAB
     Indication: RELAPSING MULTIPLE SCLEROSIS
     Dosage: (PRESCRIBED 600 MG ONCE IN 6 MONTHS)
     Route: 042
     Dates: start: 20180406

REACTIONS (3)
  - Off label use [Unknown]
  - Infection [Unknown]
  - Intentional product use issue [Unknown]
